FAERS Safety Report 9075978 (Version 1)
Quarter: 2013Q1

REPORT INFORMATION
  Report Type: Spontaneous
  Country: CA (occurrence: CA)
  Receive Date: 20130129
  Receipt Date: 20130129
  Transmission Date: 20140127
  Serious: Yes (Hospitalization)
  Sender: FDA-Public Use
  Company Number: CA-B.I. PHARMACEUTICALS,INC./RIDGEFIELD-2013-CN-00133CN

PATIENT
  Age: 76 Year
  Sex: Male
  Weight: 83.91 kg

DRUGS (7)
  1. PRADAX [Suspect]
     Dosage: 220 MG
     Route: 048
  2. ACETYLSALICYLIC ACID [Suspect]
     Route: 065
  3. AMLODIPINE [Concomitant]
  4. ASA [Concomitant]
  5. HUMULIN [Concomitant]
     Route: 030
  6. LIPITOR [Concomitant]
  7. METFORMIN [Concomitant]

REACTIONS (5)
  - Blood pressure increased [Unknown]
  - Fatigue [Unknown]
  - Haemoglobin decreased [Unknown]
  - Melaena [Unknown]
  - Ulcer haemorrhage [Unknown]
